FAERS Safety Report 19902105 (Version 1)
Quarter: 2021Q3

REPORT INFORMATION
  Report Type: Spontaneous
  Country: BD (occurrence: BD)
  Receive Date: 20210930
  Receipt Date: 20210930
  Transmission Date: 20211014
  Serious: No
  Sender: FDA-Public Use
  Company Number: BD-LUPIN PHARMACEUTICALS INC.-2021-18313

PATIENT
  Sex: Female

DRUGS (10)
  1. DOXYCYCLINE CAPSULES [Suspect]
     Active Substance: DOXYCYCLINE
     Indication: COVID-19
     Dosage: 1 DOSAGE FORM, BID FOR THE SECOND EPISODE
     Route: 048
     Dates: start: 2020, end: 2020
  2. HYDROXYCHLOROQUINE SULFATE TABLETS [Suspect]
     Active Substance: HYDROXYCHLOROQUINE SULFATE
     Indication: COVID-19
     Dosage: 2 DOSAGE FORM, QD
     Route: 048
     Dates: start: 2020, end: 2020
  3. VITAMIN D3 [Suspect]
     Active Substance: CHOLECALCIFEROL
     Indication: VITAMIN SUPPLEMENTATION
     Dosage: 1 DOSAGE FORM, QOD
     Route: 048
     Dates: start: 2020, end: 2020
  4. AZITHROMYCIN TABLETS [Suspect]
     Active Substance: AZITHROMYCIN ANHYDROUS
     Indication: COVID-19
     Dosage: 1 DOSAGE FORM, QD
     Route: 048
     Dates: start: 2020, end: 2020
  5. IVERMECTIN. [Suspect]
     Active Substance: IVERMECTIN
     Indication: COVID-19
     Dosage: 2 DOSAGE FORM, QD
     Route: 048
     Dates: start: 2020, end: 2020
  6. ZINC. [Suspect]
     Active Substance: ZINC
     Indication: COVID-19
  7. VITAMIN D3 [Suspect]
     Active Substance: CHOLECALCIFEROL
     Indication: COVID-19
  8. RIVAROXABAN [Concomitant]
     Active Substance: RIVAROXABAN
     Indication: PROPHYLAXIS
     Dosage: 1 DOSAGE FORM, QD
     Route: 048
     Dates: start: 2020, end: 2020
  9. HYDROXYCHLOROQUINE SULFATE TABLETS [Suspect]
     Active Substance: HYDROXYCHLOROQUINE SULFATE
     Dosage: 1 DOSAGE FORM, BID
     Route: 048
     Dates: start: 2020, end: 2020
  10. ZINC. [Suspect]
     Active Substance: ZINC
     Indication: MINERAL SUPPLEMENTATION
     Dosage: 1 DOSAGE FORM, BID
     Route: 048
     Dates: start: 2020, end: 2020

REACTIONS (1)
  - Off label use [Unknown]

NARRATIVE: CASE EVENT DATE: 2020
